FAERS Safety Report 7661744-1 (Version None)
Quarter: 2011Q3

REPORT INFORMATION
  Report Type: 
  Country: None (occurrence: None)
  Receive Date: 20110805
  Receipt Date: 20101028
  Transmission Date: 20111222
  Serious: No
  Sender: FDA-Public Use
  Company Number: US-ABBOTT-10P-163-0681925-00

PATIENT
  Sex: Female

DRUGS (2)
  1. NIASPAN [Suspect]
     Indication: PRODUCT USED FOR UNKNOWN INDICATION
     Dosage: 1000MG AT BEDTIME
  2. NIASPAN [Suspect]
     Dosage: 500MG AT BEDTIME

REACTIONS (2)
  - SKIN HAEMORRHAGE [None]
  - PRURITUS [None]
